FAERS Safety Report 16692341 (Version 1)
Quarter: 2019Q3

REPORT INFORMATION
  Report Type: Spontaneous
  Country: US (occurrence: US)
  Receive Date: 20190812
  Receipt Date: 20190812
  Transmission Date: 20191004
  Serious: Yes (Other)
  Sender: FDA-Public Use
  Company Number: US-AKORN PHARMACEUTICALS-2019AKN01615

PATIENT
  Sex: Male
  Weight: 68.03 kg

DRUGS (1)
  1. MYORISAN [Suspect]
     Active Substance: ISOTRETINOIN
     Indication: ACNE CYSTIC
     Dosage: 40 MG, 1X/DAY
     Dates: start: 201906, end: 20190711

REACTIONS (10)
  - Haematocrit increased [Recovering/Resolving]
  - Staphylococcal infection [Recovering/Resolving]
  - Off label use [Recovered/Resolved]
  - Skin irritation [Recovering/Resolving]
  - Dry skin [Recovering/Resolving]
  - Pain in jaw [Recovering/Resolving]
  - Platelet count decreased [Recovering/Resolving]
  - Red blood cell count increased [Recovering/Resolving]
  - Headache [Recovering/Resolving]
  - Back pain [Recovering/Resolving]

NARRATIVE: CASE EVENT DATE: 2019
